FAERS Safety Report 14299455 (Version 1)
Quarter: 2017Q4

REPORT INFORMATION
  Report Type: Spontaneous
  Country: SE (occurrence: SE)
  Receive Date: 20171219
  Receipt Date: 20171219
  Transmission Date: 20180321
  Serious: Yes (Hospitalization)
  Sender: FDA-Public Use
  Company Number: SE-CONCORDIA PHARMACEUTICALS INC.-E2B_00008864

PATIENT
  Age: 81 Year
  Sex: Male

DRUGS (8)
  1. PREDNISOLONE. [Concomitant]
     Active Substance: PREDNISOLONE
  2. ATORVASTATIN [Concomitant]
     Active Substance: ATORVASTATIN
  3. KALCIPOS [Concomitant]
     Active Substance: CALCIUM CARBONATE
  4. ZOPICLONE [Concomitant]
     Active Substance: ZOPICLONE
  5. METOPROLOL. [Suspect]
     Active Substance: METOPROLOL
     Dates: end: 20171022
  6. CITALOPRAM [Concomitant]
     Active Substance: CITALOPRAM HYDROBROMIDE
  7. PLAQUENIL [Suspect]
     Active Substance: HYDROXYCHLOROQUINE SULFATE
     Indication: SJOGREN^S SYNDROME
     Dates: end: 20171019
  8. XARELTO [Concomitant]
     Active Substance: RIVAROXABAN

REACTIONS (1)
  - Respiratory failure [Recovered/Resolved]

NARRATIVE: CASE EVENT DATE: 201710
